FAERS Safety Report 9401344 (Version 1)
Quarter: 2013Q3

REPORT INFORMATION
  Report Type: Spontaneous
  Country: US (occurrence: US)
  Receive Date: 20130715
  Receipt Date: 20130715
  Transmission Date: 20140515
  Serious: Yes (Death)
  Sender: FDA-Public Use
  Company Number: US-ROCHE-1249122

PATIENT
  Age: 44 Year
  Sex: Male

DRUGS (1)
  1. ZELBORAF [Suspect]
     Indication: SKIN CANCER
     Dosage: 4 TABS BY MOUTH 2XDAY
     Route: 065

REACTIONS (1)
  - Disease progression [Fatal]
